FAERS Safety Report 13943005 (Version 1)
Quarter: 2017Q3

REPORT INFORMATION
  Report Type: Report from Study
  Country: CA (occurrence: CA)
  Receive Date: 20170906
  Receipt Date: 20170906
  Transmission Date: 20171128
  Serious: Yes (Hospitalization, Other)
  Sender: FDA-Public Use
  Company Number: CA-MYLANLABS-2017M1044610

PATIENT
  Age: 36 Year
  Sex: Male
  Weight: 60 kg

DRUGS (3)
  1. CLOZAPINE. [Suspect]
     Active Substance: CLOZAPINE
     Indication: SCHIZOAFFECTIVE DISORDER
     Dosage: 200 MG, HS
     Route: 048
     Dates: start: 20170609, end: 20170713
  2. CLOZAPINE. [Suspect]
     Active Substance: CLOZAPINE
     Dosage: 200 MG, HS
     Route: 048
     Dates: start: 20170715
  3. DIVALPROEX [Concomitant]
     Active Substance: DIVALPROEX SODIUM
     Indication: PRODUCT USED FOR UNKNOWN INDICATION
     Dosage: 750 MG, HS
     Route: 048
     Dates: start: 201701

REACTIONS (3)
  - Blood bilirubin increased [Unknown]
  - Colitis [Recovering/Resolving]
  - Lipase increased [Recovered/Resolved]

NARRATIVE: CASE EVENT DATE: 2017
